FAERS Safety Report 21558098 (Version 1)
Quarter: 2022Q4

REPORT INFORMATION
  Report Type: Spontaneous
  Country: US (occurrence: US)
  Receive Date: 20221107
  Receipt Date: 20221107
  Transmission Date: 20230112
  Serious: No
  Sender: FDA-Public Use
  Company Number: US-drreddys-SPO/USA/22/0155685

PATIENT
  Age: 48 Year
  Sex: Female
  Weight: 45.400 kg

DRUGS (1)
  1. BUPRENORPHINE\NALOXONE [Suspect]
     Active Substance: BUPRENORPHINE\NALOXONE
     Indication: Product used for unknown indication

REACTIONS (4)
  - Withdrawal syndrome [Unknown]
  - Discomfort [Unknown]
  - Drug ineffective [Unknown]
  - Product quality issue [Unknown]
